FAERS Safety Report 10017173 (Version 1)
Quarter: 2014Q1

REPORT INFORMATION
  Report Type: Other
  Country: DE (occurrence: DE)
  Receive Date: 20140318
  Receipt Date: 20140318
  Transmission Date: 20141002
  Serious: Yes (Congenital Anomaly, Other)
  Sender: FDA-Public Use
  Company Number: DE-SUN PHARMACEUTICAL INDUSTRIES LTD-2014SUN00545

PATIENT
  Age: 1 Day
  Sex: Male
  Weight: 3.64 kg

DRUGS (3)
  1. VENLAFAXINE HYDROCHLORIDE 37.5 MG TABLET [Suspect]
     Indication: DEPRESSION
     Dosage: 150 MG/DAY, UNK
     Route: 064
     Dates: start: 20121010
  2. VENLAFAXINE HYDROCHLORIDE 37.5 MG TABLET [Suspect]
     Dosage: DOSAGE REDUCTION FROM GW 8+0: 75MG/D
     Route: 064
     Dates: end: 20130702
  3. FOLIO FORTE [Concomitant]
     Dosage: 0.8 [MG/D ] / 150 [?G/D ]
     Route: 064

REACTIONS (6)
  - Patent ductus arteriosus [Recovered/Resolved]
  - Atrial septal defect [Not Recovered/Not Resolved]
  - Neonatal respiratory distress syndrome [Recovered/Resolved]
  - Agitation neonatal [Recovered/Resolved]
  - Feeding disorder neonatal [Recovered/Resolved]
  - Foetal exposure during pregnancy [None]
